FAERS Safety Report 7441385-1 (Version None)
Quarter: 2011Q2

REPORT INFORMATION
  Report Type: 
  Country: None (occurrence: None)
  Receive Date: 20110428
  Receipt Date: 20110414
  Transmission Date: 20111010
  Serious: Yes (Hospitalization)
  Sender: FDA-Public Use
  Company Number: DE-RANBAXY-2011RR-42882

PATIENT
  Age: 34 Year
  Sex: Female
  Weight: 85 kg

DRUGS (7)
  1. CEFUROXIME [Suspect]
     Indication: BACTERIAL INFECTION
     Dosage: 250 MG, BID
     Route: 048
  2. KALETRA [Concomitant]
     Indication: HIV INFECTION
     Dosage: 125 MG, QD
     Route: 048
  3. ECALTA [Concomitant]
     Indication: ANTIBIOTIC THERAPY
     Dosage: 100 MG, QD
     Route: 042
  4. AZITHROMYCIN [Suspect]
     Indication: BACTERIAL INFECTION
     Dosage: 500 MG, QD
     Route: 048
  5. FLUCONAZOLE [Concomitant]
     Indication: BACTERIAL INFECTION
     Dosage: 50 MG, QD
     Route: 048
  6. COMBIVIR [Concomitant]
     Indication: HIV INFECTION
     Dosage: 450 MG, BID
     Route: 048
  7. AVELOX [Concomitant]
     Indication: ANTIBIOTIC THERAPY
     Dosage: 400 MG, QD
     Route: 042

REACTIONS (2)
  - TOXIC EPIDERMAL NECROLYSIS [None]
  - DRUG INTERACTION [None]
